FAERS Safety Report 9879409 (Version 1)
Quarter: 2014Q1

REPORT INFORMATION
  Report Type: Spontaneous
  Country: US (occurrence: US)
  Receive Date: 20140206
  Receipt Date: 20140206
  Transmission Date: 20141002
  Serious: No
  Sender: FDA-Public Use
  Company Number: US-TEVA-460170USA

PATIENT
  Age: 46 Year
  Sex: Female

DRUGS (2)
  1. ACTIQ [Suspect]
     Indication: BACK PAIN
     Dosage: 3000 MICROGRAM DAILY;
     Route: 048
  2. FENTANYL [Concomitant]

REACTIONS (6)
  - Dental caries [Not Recovered/Not Resolved]
  - Stomatitis [Not Recovered/Not Resolved]
  - Abdominal discomfort [Not Recovered/Not Resolved]
  - Drug ineffective [Not Recovered/Not Resolved]
  - Product solubility abnormal [Not Recovered/Not Resolved]
  - Off label use [Unknown]
